FAERS Safety Report 6395387-7 (Version None)
Quarter: 2009Q4

REPORT INFORMATION
  Report Type: 
  Country: None (occurrence: None)
  Receive Date: 20091009
  Receipt Date: 20091002
  Transmission Date: 20100525
  Serious: Yes (Hospitalization)
  Sender: FDA-Public Use
  Company Number: US-ELI_LILLY_AND_COMPANY-US200908006732

PATIENT
  Sex: Male
  Weight: 90.703 kg

DRUGS (19)
  1. BYETTA [Suspect]
     Indication: TYPE 2 DIABETES MELLITUS
     Dosage: 5 U, 2/D
     Route: 058
     Dates: start: 20070101, end: 20070101
  2. BYETTA [Suspect]
     Dosage: 10 UG, 2/D
     Route: 058
     Dates: start: 20070101, end: 20080101
  3. BYETTA [Suspect]
     Dosage: 5 UG, 2/D
     Route: 058
     Dates: start: 20080101, end: 20080101
  4. BYETTA [Suspect]
     Dosage: 10 UG, 2/D
     Route: 058
     Dates: start: 20080101
  5. OMEPRAZOLE [Concomitant]
     Dosage: 20 MG, DAILY (1/D)
     Route: 048
  6. ZOCOR [Concomitant]
     Dosage: 80 MG, DAILY (1/D)
     Route: 048
  7. TERAZOSIN HCL [Concomitant]
  8. COUMADIN [Concomitant]
     Dosage: 4 MG, 5/W
  9. COUMADIN [Concomitant]
     Dosage: 2 MG, 2/W
     Route: 048
  10. LASIX [Concomitant]
     Indication: CARDIAC FAILURE CONGESTIVE
     Dosage: 15 MG, DAILY (1/D)
     Route: 048
  11. LASIX [Concomitant]
     Dosage: 40 MG, DAILY (1/D)
  12. ASPIRIN [Concomitant]
     Dosage: 81 MG, DAILY (1/D)
     Route: 048
  13. DOXYCYCLINE [Concomitant]
     Dosage: 100 MG, QOD
     Route: 047
  14. LISINOPRIL [Concomitant]
     Dosage: 2.5 MG, DAILY (1/D)
     Route: 048
  15. POTASSIUM CHLORIDE [Concomitant]
     Dosage: 20 MEQ, DAILY (1/D)
     Route: 048
  16. CARVEDILOL [Concomitant]
     Dosage: 6.25 MG, 2/D
     Route: 048
  17. MAGNESIUM OXIDE [Concomitant]
     Dosage: 400 MG, DAILY (1/D)
     Route: 048
  18. VITAMINS [Concomitant]
  19. TUMS [Concomitant]
     Dosage: UNK, DAILY (1/D)

REACTIONS (9)
  - BLOOD GLUCOSE DECREASED [None]
  - BLOOD GLUCOSE INCREASED [None]
  - BLOOD MAGNESIUM DECREASED [None]
  - BLOOD POTASSIUM DECREASED [None]
  - CONFUSIONAL STATE [None]
  - HOSPITALISATION [None]
  - INCORRECT DOSE ADMINISTERED [None]
  - OFF LABEL USE [None]
  - VOMITING [None]
